FAERS Safety Report 4791212-6 (Version None)
Quarter: 2005Q4

REPORT INFORMATION
  Report Type: 
  Country: None (occurrence: None)
  Receive Date: 20051007
  Receipt Date: 20050829
  Transmission Date: 20060501
  Serious: Yes (Hospitalization, Other)
  Sender: FDA-Public Use
  Company Number: FR-BRISTOL-MYERS SQUIBB COMPANY-13094800

PATIENT
  Age: 31 Year
  Sex: Female
  Weight: 61 kg

DRUGS (4)
  1. REYATAZ [Suspect]
     Route: 048
     Dates: start: 20050322, end: 20050801
  2. VIDEX EC [Suspect]
     Route: 048
     Dates: start: 20050322, end: 20050801
  3. EPIVIR [Concomitant]
     Dates: start: 20041216, end: 20050801
  4. NORVIR [Concomitant]
     Dates: start: 20050322, end: 20050801

REACTIONS (1)
  - HEPATITIS [None]
